FAERS Safety Report 5128704-6 (Version None)
Quarter: 2006Q4

REPORT INFORMATION
  Report Type: 
  Country: None (occurrence: None)
  Receive Date: 20061017
  Receipt Date: 20061013
  Transmission Date: 20070319
  Serious: Yes (Other)
  Sender: FDA-Public Use
  Company Number: JP-AVENTIS-200613164JP

PATIENT

DRUGS (2)
  1. AMARYL [Suspect]
     Indication: DIABETES MELLITUS INADEQUATE CONTROL
     Route: 048
     Dates: start: 20061010, end: 20061010
  2. BASEN [Concomitant]

REACTIONS (1)
  - HYPOGLYCAEMIC COMA [None]
